FAERS Safety Report 7947997-0 (Version None)
Quarter: 2011Q4

REPORT INFORMATION
  Report Type: 
  Country: None (occurrence: None)
  Receive Date: 20111130
  Receipt Date: 20111121
  Transmission Date: 20120403
  Serious: Yes (Other)
  Sender: FDA-Public Use
  Company Number: AU-JNJFOC-20111005500

PATIENT
  Sex: Female

DRUGS (5)
  1. REMICADE [Suspect]
     Route: 042
     Dates: start: 20060929
  2. HYDROCORTISONE [Concomitant]
     Indication: PREMEDICATION
     Route: 042
  3. REMICADE [Suspect]
     Indication: CROHN'S DISEASE
     Route: 042
     Dates: start: 20110302
  4. REMICADE [Suspect]
     Route: 042
     Dates: start: 20061027
  5. REMICADE [Suspect]
     Route: 042
     Dates: start: 20110318

REACTIONS (8)
  - SWELLING [None]
  - FLUSHING [None]
  - PAIN [None]
  - ERYTHEMA [None]
  - ANXIETY [None]
  - DYSPNOEA [None]
  - HYPERSENSITIVITY [None]
  - SURGERY [None]
